FAERS Safety Report 5918334-8 (Version None)
Quarter: 2008Q4

REPORT INFORMATION
  Report Type: 
  Country: None (occurrence: None)
  Receive Date: 20081010
  Receipt Date: 20080929
  Transmission Date: 20090506
  Serious: Yes (Other)
  Sender: FDA-Public Use
  Company Number: 430006L08USA

PATIENT

DRUGS (1)
  1. NOVANTRONE [Suspect]

REACTIONS (3)
  - ACUTE PROMYELOCYTIC LEUKAEMIA [None]
  - CONDITION AGGRAVATED [None]
  - OPTIC NERVE DISORDER [None]
